FAERS Safety Report 5188055-0 (Version None)
Quarter: 2006Q4

REPORT INFORMATION
  Report Type: 
  Country: None (occurrence: None)
  Receive Date: 20061214
  Receipt Date: 20061214
  Transmission Date: 20070319
  Serious: No
  Sender: FDA-Public Use
  Company Number: None

PATIENT
  Age: 65 Year
  Sex: Female
  Weight: 52.1637 kg

DRUGS (1)
  1. AMBIEN CR [Suspect]
     Indication: INSOMNIA
     Dosage: 12.5 MG
     Dates: start: 20060807

REACTIONS (3)
  - AMNESIA [None]
  - OXYGEN SATURATION DECREASED [None]
  - WRONG TECHNIQUE IN DRUG USAGE PROCESS [None]
